FAERS Safety Report 5651670-1 (Version None)
Quarter: 2008Q1

REPORT INFORMATION
  Report Type: 
  Country: None (occurrence: None)
  Receive Date: 20080131
  Receipt Date: 20071105
  Transmission Date: 20080703
  Serious: No
  Sender: FDA-Public Use
  Company Number: US200711001209

PATIENT
  Age: 53 Year
  Sex: Female
  Weight: 65.8 kg

DRUGS (17)
  1. BYETTA [Suspect]
     Indication: TYPE 2 DIABETES MELLITUS
     Dosage: SEE IMAGE
     Route: 058
     Dates: start: 20070927, end: 20071001
  2. BYETTA [Suspect]
     Indication: TYPE 2 DIABETES MELLITUS
     Dosage: SEE IMAGE
     Route: 058
     Dates: start: 20071001, end: 20071031
  3. BYETTA [Suspect]
     Indication: TYPE 2 DIABETES MELLITUS
     Dosage: SEE IMAGE
     Route: 058
     Dates: start: 20071101, end: 20071104
  4. EXENATIDE 5MCG PEN, DISPOSABLE DEVICE (EXENATIDE PEN (5MCG)) PEN, DISP [Concomitant]
  5. FIORICET [Concomitant]
  6. ASPIRIN [Concomitant]
  7. NEXIUM [Concomitant]
  8. PEPCID [Concomitant]
  9. SINGULAIR [Concomitant]
  10. ZYRTEC [Concomitant]
  11. METFORMIN HCL [Concomitant]
  12. NADOLOL [Concomitant]
  13. CRESTOR [Concomitant]
  14. NITROGLYCERIN [Concomitant]
  15. SPIRONOLACTONE [Concomitant]
  16. VERAPAMIL [Concomitant]
  17. AMBIEN [Concomitant]

REACTIONS (11)
  - ABDOMINAL DISTENSION [None]
  - CARDIAC DISORDER [None]
  - DIZZINESS [None]
  - ERUCTATION [None]
  - HEADACHE [None]
  - MUSCLE SPASMS [None]
  - MUSCULOSKELETAL PAIN [None]
  - NAUSEA [None]
  - OEDEMA PERIPHERAL [None]
  - PALPITATIONS [None]
  - PARAESTHESIA [None]
